FAERS Safety Report 12109890 (Version 7)
Quarter: 2018Q4

REPORT INFORMATION
  Report Type: Report from Study
  Country: CA (occurrence: CA)
  Receive Date: 20160224
  Receipt Date: 20181211
  Transmission Date: 20190204
  Serious: Yes (Hospitalization, Disabling, Other)
  Sender: FDA-Public Use
  Company Number: PHHY2009CA48294

PATIENT
  Age: 53 Year
  Sex: Female

DRUGS (18)
  1. XOLAIR [Suspect]
     Active Substance: OMALIZUMAB
     Indication: ASTHMA
     Dosage: 225 MG, BIW
     Route: 058
     Dates: start: 20091030
  2. PREDNISONE. [Suspect]
     Active Substance: PREDNISONE
     Dosage: UNK
     Route: 042
  3. PREDNISONE. [Suspect]
     Active Substance: PREDNISONE
     Dosage: 50 MG, QD  (FOR 4 MONTHS)
     Route: 065
     Dates: start: 201506
  4. PREDNISONE. [Suspect]
     Active Substance: PREDNISONE
     Dosage: UNK
     Route: 042
  5. HYZAAR [Concomitant]
     Active Substance: HYDROCHLOROTHIAZIDE\LOSARTAN POTASSIUM
     Indication: PRODUCT USED FOR UNKNOWN INDICATION
     Dosage: UNK
     Route: 065
  6. XOLAIR [Suspect]
     Active Substance: OMALIZUMAB
     Dosage: UNK
     Route: 058
     Dates: start: 20160216
  7. SINGULAIR [Concomitant]
     Active Substance: MONTELUKAST SODIUM
     Indication: PRODUCT USED FOR UNKNOWN INDICATION
     Dosage: 10 MG, UNK
     Route: 065
  8. CALCIUM [Concomitant]
     Active Substance: CALCIUM
     Indication: PRODUCT USED FOR UNKNOWN INDICATION
     Dosage: UNK
     Route: 065
  9. XOLAIR [Suspect]
     Active Substance: OMALIZUMAB
     Dosage: UNK
     Route: 058
     Dates: start: 201604
  10. PREDNISONE. [Suspect]
     Active Substance: PREDNISONE
     Dosage: 5 MG, UNK
     Route: 048
     Dates: start: 20130313
  11. XOLAIR [Suspect]
     Active Substance: OMALIZUMAB
     Dosage: 225 MG, BIW
     Route: 058
     Dates: start: 20091113
  12. SPIRIVA [Concomitant]
     Active Substance: TIOTROPIUM BROMIDE MONOHYDRATE
     Indication: PRODUCT USED FOR UNKNOWN INDICATION
     Route: 065
  13. VITAMIN B12 [Concomitant]
     Active Substance: CYANOCOBALAMIN
     Indication: PRODUCT USED FOR UNKNOWN INDICATION
     Dosage: UNK
     Route: 065
  14. VITAMIN D [Concomitant]
     Active Substance: CHOLECALCIFEROL
     Indication: PRODUCT USED FOR UNKNOWN INDICATION
     Dosage: UNK
     Route: 065
  15. PREDNISONE. [Suspect]
     Active Substance: PREDNISONE
     Indication: ASTHMA
     Dosage: 8 MG, UNK
     Route: 065
     Dates: start: 20111116
  16. PREDNISONE. [Suspect]
     Active Substance: PREDNISONE
     Dosage: 10 DF, (10 PILLS) (MORNING)
     Route: 065
     Dates: start: 20160307
  17. SYMBICORT [Concomitant]
     Active Substance: BUDESONIDE\FORMOTEROL FUMARATE DIHYDRATE
     Indication: PRODUCT USED FOR UNKNOWN INDICATION
     Dosage: UNK
     Route: 065
  18. TECTA [Concomitant]
     Active Substance: PANTOPRAZOLE MAGNESIUM
     Indication: PRODUCT USED FOR UNKNOWN INDICATION
     Dosage: UNK
     Route: 065

REACTIONS (35)
  - Dysphonia [Unknown]
  - Throat irritation [Unknown]
  - General physical health deterioration [Unknown]
  - Dyspnoea exertional [Unknown]
  - Loss of consciousness [Unknown]
  - Blood pressure increased [Unknown]
  - Feeling jittery [Unknown]
  - Sensitivity to weather change [Unknown]
  - Hypersensitivity [Unknown]
  - Wheezing [Unknown]
  - Insomnia [Unknown]
  - Eating disorder [Unknown]
  - Weight decreased [Unknown]
  - Epistaxis [Unknown]
  - Dry throat [Unknown]
  - Heart rate increased [Unknown]
  - Chest pain [Recovered/Resolved]
  - Vomiting [Unknown]
  - Respiratory tract inflammation [Unknown]
  - Asthma [Unknown]
  - Chest discomfort [Unknown]
  - Oxygen saturation decreased [Unknown]
  - Breast cancer [Unknown]
  - Cardiac disorder [Unknown]
  - Oropharyngeal pain [Unknown]
  - Palpitations [Recovered/Resolved]
  - Cough [Unknown]
  - Dyspnoea [Unknown]
  - Respiratory distress [Unknown]
  - Feeling abnormal [Unknown]
  - Tremor [Unknown]
  - Malaise [Unknown]
  - Anxiety [Unknown]
  - Body temperature decreased [Unknown]
  - Stress [Unknown]

NARRATIVE: CASE EVENT DATE: 2009
